FAERS Safety Report 14037023 (Version 2)
Quarter: 2017Q4

REPORT INFORMATION
  Report Type: Spontaneous
  Country: JP (occurrence: JP)
  Receive Date: 20171004
  Receipt Date: 20171115
  Transmission Date: 20180321
  Serious: Yes (Hospitalization)
  Sender: FDA-Public Use
  Company Number: JP-ROCHE-2001810

PATIENT
  Age: 14 Year
  Sex: Male
  Weight: 50 kg

DRUGS (7)
  1. CELLCEPT [Suspect]
     Active Substance: MYCOPHENOLATE MOFETIL\MYCOPHENOLATE MOFETIL HYDROCHLORIDE
     Indication: NEPHROTIC SYNDROME
     Dosage: MOST RECENT DOSE ON 28/OCT/2016.
     Route: 048
     Dates: start: 20161004
  2. PREDONINE [Concomitant]
     Active Substance: PREDNISOLONE
     Indication: NEPHROTIC SYNDROME
     Dosage: MAXIMUM AMOUNT DURING THE PERIOD 60 MG / DAY, MINIMUM AMOUNT 5 MG / DAY
     Route: 048
     Dates: start: 20160531, end: 20161122
  3. CELLCEPT [Suspect]
     Active Substance: MYCOPHENOLATE MOFETIL\MYCOPHENOLATE MOFETIL HYDROCHLORIDE
     Indication: NEPHROTIC SYNDROME
     Dosage: THE FRACTIONATION DOSE FREQUENCY IS UNCERTAIN. ?DOSE INTERVAL UNCERTAINTY
     Route: 048
     Dates: start: 20160917, end: 20161003
  4. PREDONINE [Concomitant]
     Active Substance: PREDNISOLONE
     Indication: NEPHROTIC SYNDROME
     Dosage: MAXIMUM AMOUNT DURING THE PERIOD 60 MG / DAY, MINIMUM AMOUNT 5 MG / DAY
     Route: 048
     Dates: start: 20150701, end: 20150908
  5. PREDONINE [Concomitant]
     Active Substance: PREDNISOLONE
     Indication: NEPHROTIC SYNDROME
     Dosage: MAXIMUM AMOUNT DURING THE PERIOD 60 MG / DAY, MINIMUM AMOUNT 5 MG / DAY
     Route: 048
     Dates: start: 20170210, end: 20170516
  6. SULFAMETHOXAZOLE/TRIMETHOPRIM [Concomitant]
     Active Substance: SULFAMETHOXAZOLE\TRIMETHOPRIM
     Dosage: THE FRACTIONATION DOSE FREQUENCY IS UNCERTAIN. ?DOSE INTERVAL UNCERTAINTY
     Route: 048
     Dates: start: 20160917, end: 20161028
  7. PREDONINE [Concomitant]
     Active Substance: PREDNISOLONE
     Indication: NEPHROTIC SYNDROME
     Dosage: MAXIMUM AMOUNT DURING THE PERIOD 60 MG / DAY, MINIMUM AMOUNT 5 MG / DAY
     Route: 048
     Dates: start: 20160107, end: 20160429

REACTIONS (4)
  - Headache [Unknown]
  - Off label use [Unknown]
  - Agranulocytosis [Recovered/Resolved]
  - Pyrexia [Recovered/Resolved]

NARRATIVE: CASE EVENT DATE: 20161025
